FAERS Safety Report 11820642 (Version 1)
Quarter: 2015Q4

REPORT INFORMATION
  Report Type: Spontaneous
  Country: US (occurrence: US)
  Receive Date: 20151210
  Receipt Date: 20151210
  Transmission Date: 20160305
  Serious: No
  Sender: FDA-Public Use
  Company Number: US-JNJFOC-20150500970

PATIENT
  Age: 87 Year
  Sex: Female

DRUGS (8)
  1. GABAPENTIN. [Concomitant]
     Active Substance: GABAPENTIN
  2. FISH OIL [Concomitant]
     Active Substance: FISH OIL
  3. VITAMIN C [Concomitant]
     Active Substance: ASCORBIC ACID
  4. XANAX [Concomitant]
     Active Substance: ALPRAZOLAM
  5. HIPREX [Concomitant]
     Active Substance: METHENAMINE HIPPURATE
  6. CALCIUM AND VITAMIN D [Concomitant]
     Active Substance: CALCIUM\VITAMIN D
  7. GARLIC OIL [Concomitant]
     Active Substance: GARLIC OIL
  8. IMBRUVICA [Suspect]
     Active Substance: IBRUTINIB
     Indication: CHRONIC LYMPHOCYTIC LEUKAEMIA
     Route: 048
     Dates: start: 20150416

REACTIONS (6)
  - Fatigue [Recovering/Resolving]
  - Back pain [Unknown]
  - Platelet count decreased [Unknown]
  - Contusion [Unknown]
  - Acne [Recovered/Resolved]
  - Incorrect dose administered [Not Recovered/Not Resolved]

NARRATIVE: CASE EVENT DATE: 2015
